FAERS Safety Report 20006486 (Version 1)
Quarter: 2021Q4

REPORT INFORMATION
  Report Type: Spontaneous
  Country: US (occurrence: US)
  Receive Date: 20211028
  Receipt Date: 20211028
  Transmission Date: 20220303
  Serious: Yes (Hospitalization)
  Sender: FDA-Public Use
  Company Number: None

PATIENT
  Age: 79 Year
  Sex: Female
  Weight: 54.45 kg

DRUGS (5)
  1. MYLERAN [Suspect]
     Active Substance: BUSULFAN
     Indication: Myeloproliferative neoplasm
     Dosage: OTHER FREQUENCY:Q72H;
     Route: 048
     Dates: start: 20181126
  2. Nadolol 20mg [Concomitant]
  3. Protonix 20mg [Concomitant]
  4. ONDANSETRON [Concomitant]
     Active Substance: ONDANSETRON
  5. VALACYCLOVIR [Concomitant]
     Active Substance: VALACYCLOVIR HYDROCHLORIDE

REACTIONS (1)
  - Hospitalisation [None]

NARRATIVE: CASE EVENT DATE: 20211028
